FAERS Safety Report 7048389-1 (Version None)
Quarter: 2010Q4

REPORT INFORMATION
  Report Type: 
  Country: None (occurrence: None)
  Receive Date: 20101015
  Receipt Date: 20101015
  Transmission Date: 20110411
  Serious: Yes (Other)
  Sender: FDA-Public Use
  Company Number: None

PATIENT
  Age: 15 Year
  Sex: Male
  Weight: 87.5442 kg

DRUGS (2)
  1. MIDODRINE HYDROCHLORIDE [Suspect]
     Dosage: 5 MG 1/2 TAB TID; IF TOLERATED 1 TAB TID IF TOLERATED 1 1/2 TAB TID
     Dates: start: 20100616
  2. MIDODRINE HYDROCHLORIDE [Suspect]
     Dosage: 5 MG 2 TABS QID
     Dates: start: 20100916

REACTIONS (2)
  - DRUG INEFFECTIVE [None]
  - PRODUCT SUBSTITUTION ISSUE [None]
